FAERS Safety Report 9878322 (Version 1)
Quarter: 2014Q1

REPORT INFORMATION
  Report Type: Spontaneous
  Country: CA (occurrence: CA)
  Receive Date: 20140206
  Receipt Date: 20140206
  Transmission Date: 20141002
  Serious: Yes (Death)
  Sender: FDA-Public Use
  Company Number: CA-GLAXOSMITHKLINE-A1059492A

PATIENT
  Sex: Male

DRUGS (1)
  1. ARZERRA [Suspect]
     Indication: LYMPHOCYTIC LEUKAEMIA
     Dosage: 2000MG WEEKLY
     Route: 065
     Dates: start: 20130829

REACTIONS (1)
  - Death [Fatal]
